FAERS Safety Report 4662726-4 (Version None)
Quarter: 2005Q2

REPORT INFORMATION
  Report Type: 
  Country: None (occurrence: None)
  Receive Date: 20050516
  Receipt Date: 20050503
  Transmission Date: 20051028
  Serious: Yes (Death)
  Sender: FDA-Public Use
  Company Number: DE-GLAXOSMITHKLINE-B0379740A

PATIENT
  Age: 60 Year
  Sex: Male
  Weight: 65.7 kg

DRUGS (6)
  1. TOPOTECAN [Suspect]
     Dosage: 1MGM2 PER DAY
     Route: 042
     Dates: start: 20050308, end: 20050312
  2. CISPLATIN [Suspect]
     Dosage: 75MGM2 PER DAY
     Route: 042
     Dates: start: 20050312, end: 20050312
  3. MSI [Concomitant]
  4. IBUHEXAL [Concomitant]
  5. TRAMADOL HCL [Concomitant]
  6. RED BLOOD CELLS [Concomitant]

REACTIONS (2)
  - CIRCULATORY COLLAPSE [None]
  - MONOPLEGIA [None]
